FAERS Safety Report 16223539 (Version 3)
Quarter: 2019Q2

REPORT INFORMATION
  Report Type: Spontaneous
  Country: US (occurrence: US)
  Receive Date: 20190422
  Receipt Date: 20190524
  Transmission Date: 20190711
  Serious: No
  Sender: FDA-Public Use
  Company Number: US-PFIZER INC-2019167417

PATIENT
  Age: 66 Year
  Sex: Female

DRUGS (3)
  1. PREMPRO [Suspect]
     Active Substance: ESTROGENS, CONJUGATED\MEDROXYPROGESTERONE ACETATE
     Indication: MENOPAUSE
     Dosage: 1 DF, DAILY (1 TABLET BY MOUTH DAILY FOR 28 DAYS)
     Route: 048
  2. PREMPRO [Suspect]
     Active Substance: ESTROGENS, CONJUGATED\MEDROXYPROGESTERONE ACETATE
     Dosage: 5 MG, DAILY
  3. PREMPRO [Suspect]
     Active Substance: ESTROGENS, CONJUGATED\MEDROXYPROGESTERONE ACETATE
     Dosage: 2.5 MG, DAILY

REACTIONS (6)
  - Insomnia [Unknown]
  - Product dispensing error [Not Recovered/Not Resolved]
  - Migraine [Unknown]
  - Malaise [Unknown]
  - Headache [Unknown]
  - Withdrawal syndrome [Unknown]
